FAERS Safety Report 6837218-4 (Version None)
Quarter: 2010Q3

REPORT INFORMATION
  Report Type: 
  Country: None (occurrence: None)
  Receive Date: 20100707
  Receipt Date: 20100629
  Transmission Date: 20110219
  Serious: Yes (Death, Life-Threatening)
  Sender: FDA-Public Use
  Company Number: 2010EU003089

PATIENT
  Age: 8 Month
  Sex: Male

DRUGS (2)
  1. MYCAMINE [Suspect]
     Indication: ENDOCARDITIS CANDIDA
     Dosage: IV NOS
     Route: 042
  2. VFEND [Concomitant]

REACTIONS (7)
  - FOOT AMPUTATION [None]
  - LIVER DISORDER [None]
  - MENINGITIS [None]
  - PURPURA [None]
  - SEPTIC SHOCK [None]
  - SHOCK HAEMORRHAGIC [None]
  - TOE AMPUTATION [None]
